FAERS Safety Report 9409601 (Version 1)
Quarter: 2013Q3

REPORT INFORMATION
  Report Type: Report from Study
  Country: MX (occurrence: MX)
  Receive Date: 20130719
  Receipt Date: 20130719
  Transmission Date: 20140515
  Serious: Yes (Other)
  Sender: FDA-Public Use
  Company Number: PHHY2011MX113235

PATIENT
  Age: 37 Year
  Sex: Female

DRUGS (3)
  1. RASILEZ [Suspect]
     Indication: HYPERTENSION
     Dosage: 150 MG, 1 DF DAILY
     Dates: start: 201111
  2. METOPROLOL [Concomitant]
     Indication: BLOOD PRESSURE DECREASED
     Dosage: 1 DF, DAILY
     Dates: start: 200601
  3. METOPROLOL [Concomitant]
     Indication: TACHYCARDIA

REACTIONS (11)
  - Nervousness [Not Recovered/Not Resolved]
  - Tachycardia [Not Recovered/Not Resolved]
  - Nausea [Not Recovered/Not Resolved]
  - Feeling of despair [Not Recovered/Not Resolved]
  - Chest pain [Not Recovered/Not Resolved]
  - Headache [Not Recovered/Not Resolved]
  - Chest discomfort [Not Recovered/Not Resolved]
  - Peripheral coldness [Not Recovered/Not Resolved]
  - Hyperhidrosis [Not Recovered/Not Resolved]
  - Fear [Not Recovered/Not Resolved]
  - Blood pressure increased [Not Recovered/Not Resolved]
